FAERS Safety Report 4855805-X (Version None)
Quarter: 2005Q4

REPORT INFORMATION
  Report Type: 
  Country: None (occurrence: None)
  Receive Date: 20051215
  Receipt Date: 20051215
  Transmission Date: 20060501
  Serious: Yes (Disabling)
  Sender: FDA-Public Use
  Company Number: None

PATIENT
  Sex: Male
  Weight: 23.4 kg

DRUGS (4)
  1. AMBISOME [Suspect]
     Indication: HISTOPLASMOSIS
     Dosage: 120 MG EVERY 24 HOURS IV
     Route: 042
     Dates: start: 20051201, end: 20061212
  2. OCEAN NASAL SPRAY [Concomitant]
  3. ACETAMINPHEN LIQUID [Concomitant]
  4. DIPHENHYDRAMINE HCL [Concomitant]

REACTIONS (5)
  - CHILLS [None]
  - HEADACHE [None]
  - INFUSION RELATED REACTION [None]
  - PYREXIA [None]
  - VOMITING [None]
